FAERS Safety Report 22047485 (Version 2)
Quarter: 2023Q1

REPORT INFORMATION
  Report Type: Spontaneous
  Country: US (occurrence: US)
  Receive Date: 20230301
  Receipt Date: 20230305
  Transmission Date: 20230418
  Serious: No
  Sender: FDA-Public Use
  Company Number: US-JNJFOC-20230238046

PATIENT
  Age: 60 Year
  Sex: Male

DRUGS (1)
  1. DARZALEX FASPRO [Suspect]
     Active Substance: DARATUMUMAB\HYALURONIDASE-FIHJ
     Indication: Plasma cell myeloma
     Dosage: DARZALEX FASPRO VIAL 1800.00 MG/15.00 ML
     Route: 058

REACTIONS (4)
  - Product dose omission issue [Unknown]
  - Pain [Unknown]
  - Back pain [Unknown]
  - Product storage error [Unknown]
